FAERS Safety Report 5233381-X (Version None)
Quarter: 2007Q1

REPORT INFORMATION
  Report Type: 
  Country: None (occurrence: None)
  Receive Date: 20070206
  Receipt Date: 20070124
  Transmission Date: 20070707
  Serious: Yes (Life-Threatening, Other)
  Sender: FDA-Public Use
  Company Number: 430003M07USA

PATIENT
  Age: 29 Year
  Sex: Female

DRUGS (3)
  1. NOVANTRONE [Suspect]
     Indication: MULTIPLE SCLEROSIS
     Dosage: NOT REPORTED, 1 IN 3 MONTHS, INTRAVENOUS (NOT OTHERWISE SPECIFIED)
     Route: 042
     Dates: start: 20040201, end: 20060901
  2. REBIF [Concomitant]
  3. METHYLPREDNISOLONE [Concomitant]

REACTIONS (1)
  - ACUTE MYELOID LEUKAEMIA [None]
